FAERS Safety Report 21065768 (Version 1)
Quarter: 2022Q3

REPORT INFORMATION
  Report Type: Spontaneous
  Country: FR (occurrence: FR)
  Receive Date: 20220711
  Receipt Date: 20220711
  Transmission Date: 20221027
  Serious: Yes (Hospitalization, Other)
  Sender: FDA-Public Use
  Company Number: None

PATIENT
  Age: 37 Year
  Sex: Female

DRUGS (2)
  1. ROPIVACAINE HYDROCHLORIDE ANHYDROUS [Suspect]
     Active Substance: ROPIVACAINE HYDROCHLORIDE ANHYDROUS
     Indication: Anaesthesia
     Dates: start: 20220318, end: 20220318
  2. XYLOCAINE [Suspect]
     Active Substance: LIDOCAINE HYDROCHLORIDE
     Indication: Anaesthesia
     Dosage: DOSE TEST
     Dates: start: 20220318, end: 20220318

REACTIONS (6)
  - Decreased eye contact [Recovered/Resolved]
  - Dyspnoea [Recovered/Resolved]
  - Nervous system disorder [Recovered/Resolved]
  - Caesarean section [Recovered/Resolved]
  - Anaesthetic complication vascular [Recovered/Resolved]
  - Hypotension [Recovered/Resolved]

NARRATIVE: CASE EVENT DATE: 20220318
